FAERS Safety Report 4790056-9 (Version None)
Quarter: 2005Q4

REPORT INFORMATION
  Report Type: 
  Country: None (occurrence: None)
  Receive Date: 20051005
  Receipt Date: 20051005
  Transmission Date: 20060501
  Serious: No
  Sender: FDA-Public Use
  Company Number: None

PATIENT
  Sex: Female
  Weight: 56.7903 kg

DRUGS (13)
  1. BIAXIN [Suspect]
     Indication: HELICOBACTER INFECTION
     Dosage: 500MG  BID PO
     Route: 048
     Dates: start: 20050601, end: 20050615
  2. SEROQUEL [Suspect]
     Indication: BIPOLAR DISORDER
     Dosage: 250MG TID PO
     Route: 048
     Dates: start: 20050315, end: 20050615
  3. DAILY ACCUCHECKS [Concomitant]
  4. PREVPAK -AMOX [Concomitant]
  5. BIAXIN [Concomitant]
  6. PREVACID [Concomitant]
  7. DOXYCYCLINE [Concomitant]
  8. FOSAMAX [Concomitant]
  9. LEVAQUIN [Concomitant]
  10. LEVOTHYROXINE [Concomitant]
  11. ONE-TAB DAILY VITAMINS [Concomitant]
  12. SEROQUEL [Concomitant]
  13. ZOLOFT [Concomitant]

REACTIONS (3)
  - DRUG CLEARANCE DECREASED [None]
  - DRUG LEVEL INCREASED [None]
  - HYPOTHERMIA [None]
